FAERS Safety Report 19030097 (Version 1)
Quarter: 2021Q1

REPORT INFORMATION
  Report Type: Spontaneous
  Country: US (occurrence: US)
  Receive Date: 20210318
  Receipt Date: 20210318
  Transmission Date: 20210420
  Serious: Yes (Other)
  Sender: FDA-Public Use
  Company Number: None

PATIENT
  Age: 35 Year
  Sex: Female
  Weight: 82.6 kg

DRUGS (9)
  1. GAMUNEX?C [Suspect]
     Active Substance: HUMAN IMMUNOGLOBULIN G
     Indication: AUTOIMMUNE NEUROPATHY
     Route: 042
  2. TOPIRAMATE. [Concomitant]
     Active Substance: TOPIRAMATE
  3. PYRIDOSTIGMINE [Concomitant]
     Active Substance: PYRIDOSTIGMINE
  4. CAPSAICIN. [Concomitant]
     Active Substance: CAPSAICIN
  5. LINACLOTIDE [Concomitant]
     Active Substance: LINACLOTIDE
  6. GAMUNEX?C [Suspect]
     Active Substance: HUMAN IMMUNOGLOBULIN G
     Indication: AUTONOMIC NEUROPATHY
     Route: 042
  7. PHENTERMINE. [Concomitant]
     Active Substance: PHENTERMINE
  8. LIDOCAINE TOPICAL [Concomitant]
     Active Substance: LIDOCAINE
  9. MELOXICAM. [Concomitant]
     Active Substance: MELOXICAM

REACTIONS (4)
  - Livedo reticularis [None]
  - Rash [None]
  - Pain in extremity [None]
  - Thrombophlebitis superficial [None]
